FAERS Safety Report 20461209 (Version 1)
Quarter: 2022Q1

REPORT INFORMATION
  Report Type: Spontaneous
  Country: US (occurrence: US)
  Receive Date: 20220211
  Receipt Date: 20220211
  Transmission Date: 20220423
  Serious: No
  Sender: FDA-Public Use
  Company Number: US-JNJFOC-20220201386

PATIENT
  Age: 8 Decade
  Sex: Female

DRUGS (2)
  1. MENS ROGAINE EXTRA STRENGTH [Suspect]
     Active Substance: MINOXIDIL
     Indication: Alopecia
     Dosage: DOESN^T MEASURE, JUST PUT A SMALL AMOUNT ON SCALP ABOUT ONCE EVERY OTHER DAY AS NEEDED
     Route: 061
  2. MENS ROGAINE EXTRA STRENGTH [Suspect]
     Active Substance: MINOXIDIL
     Indication: Alopecia

REACTIONS (6)
  - Hair growth abnormal [Recovering/Resolving]
  - Application site erythema [Recovering/Resolving]
  - Product use issue [Unknown]
  - Off label use [Unknown]
  - Contraindicated product administered [Unknown]
  - Product use in unapproved indication [Unknown]
